FAERS Safety Report 8445725-6 (Version None)
Quarter: 2012Q2

REPORT INFORMATION
  Report Type: 
  Country: None (occurrence: None)
  Receive Date: 20120618
  Receipt Date: 20120612
  Transmission Date: 20120825
  Serious: Yes (Congenital Anomaly)
  Sender: FDA-Public Use
  Company Number: US-GLAXOSMITHKLINE-A0981436A

PATIENT
  Sex: Male
  Weight: 9 kg

DRUGS (1)
  1. PAXIL [Suspect]
     Indication: ANXIETY
     Dosage: 20MG PER DAY
     Route: 064
     Dates: start: 20050101

REACTIONS (4)
  - FOETAL EXPOSURE DURING PREGNANCY [None]
  - PHIMOSIS [None]
  - PENOSCROTAL FUSION [None]
  - PENILE TORSION [None]
